FAERS Safety Report 21083162 (Version 1)
Quarter: 2022Q3

REPORT INFORMATION
  Report Type: Spontaneous
  Country: US (occurrence: None)
  Receive Date: 20220714
  Receipt Date: 20220714
  Transmission Date: 20221026
  Serious: Yes (Life-Threatening, Hospitalization)
  Sender: FDA-Public Use
  Company Number: None

PATIENT
  Age: 72 Year
  Sex: Female
  Weight: 94.5 kg

DRUGS (10)
  1. GABAPENTIN [Suspect]
     Active Substance: GABAPENTIN
     Indication: Knee arthroplasty
     Dates: start: 20220711, end: 20220714
  2. DILAUDID [Suspect]
     Active Substance: HYDROMORPHONE HYDROCHLORIDE
  3. METHOCARBAMOL [Suspect]
     Active Substance: METHOCARBAMOL
  4. ELLIPTA INHALER [Concomitant]
  5. CEPHALEXIN [Concomitant]
     Active Substance: CEPHALEXIN
  6. HYDROMORPHONE [Concomitant]
     Active Substance: HYDROMORPHONE
  7. PROMETHAZINE [Concomitant]
     Active Substance: PROMETHAZINE HYDROCHLORIDE
  8. TORRADOL [Concomitant]
  9. ADULT MULTI-VITAMIN [Concomitant]
  10. DULCOLAX NOS [Concomitant]
     Active Substance: BISACODYL OR DOCUSATE SODIUM

REACTIONS (4)
  - Oxygen saturation decreased [None]
  - Contraindicated product prescribed [None]
  - Contraindicated product administered [None]
  - Therapy cessation [None]

NARRATIVE: CASE EVENT DATE: 20220712
